FAERS Safety Report 13653954 (Version 1)
Quarter: 2017Q2

REPORT INFORMATION
  Report Type: Spontaneous
  Country: US (occurrence: US)
  Receive Date: 20170614
  Receipt Date: 20170614
  Transmission Date: 20170830
  Serious: Yes (Hospitalization, Other)
  Sender: FDA-Public Use
  Company Number: US-NOVOPROD-549425

PATIENT
  Age: 67 Year
  Sex: Male
  Weight: 102.6 kg

DRUGS (6)
  1. LEVEMIR [Suspect]
     Active Substance: INSULIN DETEMIR
     Indication: TYPE 2 DIABETES MELLITUS
     Dosage: 60 U, QD
     Route: 058
     Dates: start: 2011, end: 201610
  2. LEVEMIR [Suspect]
     Active Substance: INSULIN DETEMIR
     Dosage: 40 U, BID
     Route: 058
     Dates: start: 201610
  3. BENICAR [Concomitant]
     Active Substance: OLMESARTAN MEDOXOMIL
     Indication: HYPERTENSION
     Dosage: UNK
     Route: 048
  4. BENICAR [Concomitant]
     Active Substance: OLMESARTAN MEDOXOMIL
     Dosage: INCREASED DOSE
     Route: 048
     Dates: start: 201610
  5. MOTRIN [Suspect]
     Active Substance: IBUPROFEN
     Indication: BACK DISORDER
     Route: 048
     Dates: start: 2015, end: 2016
  6. MOTRIN [Suspect]
     Active Substance: IBUPROFEN
     Indication: TOOTHACHE

REACTIONS (6)
  - Blood pressure increased [Recovered/Resolved]
  - Coronary artery occlusion [Recovered/Resolved]
  - Blood glucose increased [Recovered/Resolved]
  - Dyspnoea [Recovered/Resolved]
  - Blood pressure increased [Recovered/Resolved]
  - Dyspnoea [Recovered/Resolved]

NARRATIVE: CASE EVENT DATE: 201510
